FAERS Safety Report 8092998-8 (Version None)
Quarter: 2011Q4

REPORT INFORMATION
  Report Type: 
  Country: None (occurrence: None)
  Receive Date: 20111222
  Receipt Date: 20110909
  Transmission Date: 20120403
  Serious: Yes (Hospitalization)
  Sender: FDA-Public Use
  Company Number: UTC-009749

PATIENT
  Age: 69 Year
  Sex: Male
  Weight: 73.18 kg

DRUGS (4)
  1. DIURETICS (DIURETICS) [Concomitant]
  2. TRACLEER [Concomitant]
  3. REVATIO [Concomitant]
  4. TYVASO [Suspect]
     Indication: COR PULMONALE CHRONIC
     Dosage: (36 MCG, 4 SESSIONS), INHALATION
     Route: 055
     Dates: start: 20110523

REACTIONS (1)
  - PNEUMONIA [None]
